APPROVED DRUG PRODUCT: CLORAZEPATE DIPOTASSIUM
Active Ingredient: CLORAZEPATE DIPOTASSIUM
Strength: 15MG
Dosage Form/Route: TABLET;ORAL
Application: A213730 | Product #003 | TE Code: AB
Applicant: NOVITIUM PHARMA LLC
Approved: Dec 16, 2022 | RLD: No | RS: No | Type: RX